FAERS Safety Report 25921035 (Version 1)
Quarter: 2025Q4

REPORT INFORMATION
  Report Type: Spontaneous
  Country: SA (occurrence: SA)
  Receive Date: 20251014
  Receipt Date: 20251014
  Transmission Date: 20260118
  Serious: Yes (Life-Threatening, Hospitalization)
  Sender: GALPHARM INTERNATIONAL
  Company Number: SA-MLMSERVICE-20250926-PI658960-00029-1

PATIENT
  Age: 20 Year
  Sex: Male

DRUGS (3)
  1. ACETAMINOPHEN [Suspect]
     Active Substance: ACETAMINOPHEN
     Indication: Pyrexia
     Dosage: UNKNOWN, UNKNOWN
     Route: 048
     Dates: start: 20221209
  2. LEVETIRACETAM [Concomitant]
     Active Substance: LEVETIRACETAM
     Indication: Epilepsy
     Dosage: 750 MG, TWICE DAILY; DOSE WAS LAST ADJUSTED IN SEPTEMBER 2021, WHEN IT WAS INCREASED FROM 500 MG TO
     Route: 065
     Dates: start: 202109
  3. LEVETIRACETAM [Concomitant]
     Active Substance: LEVETIRACETAM
     Dosage: 500 MG TWICE DAILY; HIS DOSE WAS LAST ADJUSTED IN SEPTEMBER 2021, WHEN IT WAS INCREASED FROM 500 MG
     Route: 065
     Dates: end: 202109

REACTIONS (1)
  - Drug-induced liver injury [Recovered/Resolved]

NARRATIVE: CASE EVENT DATE: 20221204
